FAERS Safety Report 5698334-6 (Version None)
Quarter: 2008Q2

REPORT INFORMATION
  Report Type: 
  Country: None (occurrence: None)
  Receive Date: 20080408
  Receipt Date: 20080327
  Transmission Date: 20081010
  Serious: Yes (Hospitalization)
  Sender: FDA-Public Use
  Company Number: US-PFIZER INC-2008029424

PATIENT
  Sex: Female
  Weight: 95.454 kg

DRUGS (5)
  1. CHANTIX [Suspect]
     Indication: SMOKING CESSATION THERAPY
     Route: 048
     Dates: start: 20080318, end: 20080326
  2. TRILEPTAL [Concomitant]
     Route: 048
  3. KLONOPIN [Concomitant]
     Route: 048
  4. AMBIEN [Concomitant]
     Route: 048
  5. RISPERDAL [Concomitant]
     Route: 048

REACTIONS (11)
  - CRYING [None]
  - DIARRHOEA [None]
  - DRUG TOXICITY [None]
  - FEELING ABNORMAL [None]
  - FORMICATION [None]
  - HEADACHE [None]
  - LETHARGY [None]
  - MALAISE [None]
  - NAUSEA [None]
  - TREMOR [None]
  - VOMITING [None]
